FAERS Safety Report 11542857 (Version 1)
Quarter: 2015Q3

REPORT INFORMATION
  Report Type: Spontaneous
  Country: US (occurrence: US)
  Receive Date: 20150903
  Receipt Date: 20150903
  Transmission Date: 20151125
  Serious: No
  Sender: FDA-Public Use
  Company Number: US-ELI_LILLY_AND_COMPANY-US201205003819

PATIENT
  Age: 31 Year
  Sex: Male

DRUGS (1)
  1. HUMALOG [Suspect]
     Active Substance: INSULIN LISPRO
     Indication: DIABETES MELLITUS
     Dosage: 80 U, QD
     Route: 058
     Dates: start: 2007

REACTIONS (2)
  - Blood glucose increased [Unknown]
  - Drug dose omission [Unknown]

NARRATIVE: CASE EVENT DATE: 20120507
